FAERS Safety Report 18348940 (Version 1)
Quarter: 2020Q4

REPORT INFORMATION
  Report Type: Spontaneous
  Country: US (occurrence: US)
  Receive Date: 20201005
  Receipt Date: 20201005
  Transmission Date: 20210114
  Serious: Yes (Hospitalization)
  Sender: FDA-Public Use
  Company Number: None

PATIENT
  Age: 25 Year
  Sex: Female

DRUGS (22)
  1. AMOX/K CLAV [Concomitant]
     Active Substance: AMOXICILLIN\CLAVULANATE POTASSIUM
  2. GABAPENTIN. [Concomitant]
     Active Substance: GABAPENTIN
  3. AIMOVIG [Concomitant]
     Active Substance: ERENUMAB-AOOE
  4. APAP/CODEINE [Concomitant]
     Active Substance: ACETAMINOPHEN\CODEINE PHOSPHATE
  5. FLUCONAZOLE. [Concomitant]
     Active Substance: FLUCONAZOLE
  6. FOLIC ACID. [Concomitant]
     Active Substance: FOLIC ACID
  7. PREDNISONE. [Concomitant]
     Active Substance: PREDNISONE
  8. NURTEC ODT [Concomitant]
     Active Substance: RIMEGEPANT SULFATE
  9. HUMIRA [Suspect]
     Active Substance: ADALIMUMAB
     Dosage: ?          OTHER DOSE:1 AUTOINECTOR;?
     Route: 058
     Dates: start: 20200909
  10. NITROFUR MAC [Concomitant]
     Active Substance: NITROFURANTOIN
  11. PAROXETINE. [Concomitant]
     Active Substance: PAROXETINE
  12. TIZANIDINE. [Concomitant]
     Active Substance: TIZANIDINE
  13. TRAZODONE [Concomitant]
     Active Substance: TRAZODONE HYDROCHLORIDE
  14. BUT/ APAP/CAF [Concomitant]
  15. IBUPROFEN. [Concomitant]
     Active Substance: IBUPROFEN
  16. CIPROFLOXACN [Concomitant]
     Active Substance: CIPROFLOXACIN
  17. METHOTREXATE. [Concomitant]
     Active Substance: METHOTREXATE
  18. METHYLPRED [Concomitant]
     Active Substance: METHYLPREDNISOLONE
  19. PROMETHAZINE. SUMATRIPTAN [Concomitant]
  20. FLUTICASONE. [Concomitant]
     Active Substance: FLUTICASONE
  21. NITROFURANTIN [Concomitant]
     Active Substance: NITROFURANTOIN
  22. ONDANSETRON [Concomitant]
     Active Substance: ONDANSETRON

REACTIONS (1)
  - Nephrolithiasis [None]

NARRATIVE: CASE EVENT DATE: 20200930
